FAERS Safety Report 9637114 (Version 1)
Quarter: 2013Q4

REPORT INFORMATION
  Report Type: Report from Study
  Country: US (occurrence: US)
  Receive Date: 20131022
  Receipt Date: 20131022
  Transmission Date: 20140711
  Serious: Yes (Hospitalization)
  Sender: FDA-Public Use
  Company Number: US-ROCHE-1290883

PATIENT
  Age: 60 Year
  Sex: Male

DRUGS (6)
  1. BEVACIZUMAB [Suspect]
     Indication: GLIOBLASTOMA
     Route: 042
     Dates: start: 20121016
  2. VORINOSTAT [Suspect]
     Indication: GLIOBLASTOMA
     Route: 048
     Dates: start: 20130128
  3. XANAX [Concomitant]
  4. ASPIRIN [Concomitant]
  5. DEXAMETHASONE [Concomitant]
  6. LACTULOSE [Concomitant]
     Route: 065

REACTIONS (2)
  - Urinary retention [Unknown]
  - Constipation [Unknown]
